FAERS Safety Report 9237255 (Version 3)
Quarter: 2014Q2

REPORT INFORMATION
  Report Type: Spontaneous
  Country: ES (occurrence: ES)
  Receive Date: 20130417
  Receipt Date: 20140609
  Transmission Date: 20141212
  Serious: Yes (Hospitalization, Other)
  Sender: FDA-Public Use
  Company Number: ES-VERTEX PHARMACEUTICALS INC.-2013-004968

PATIENT
  Age: 50 Year
  Sex: Male
  Weight: 73 kg

DRUGS (10)
  1. INCIVO [Suspect]
     Indication: CHRONIC HEPATITIS C
     Dosage: 750 MG, TID
     Route: 048
     Dates: start: 20130404, end: 20130409
  2. PEG INTERFERON [Concomitant]
     Indication: CHRONIC HEPATITIS C
     Dosage: 120 ?G, QW
     Dates: start: 20130404, end: 20130409
  3. RIBAVIRIN [Concomitant]
     Indication: CHRONIC HEPATITIS C
     Dates: start: 20130404, end: 20130409
  4. METFORMIN [Concomitant]
     Indication: CHRONIC HEPATITIS C
     Dosage: 1/2 - 0 - 1/2
  5. INSULIN LANTUS [Concomitant]
     Indication: PRODUCT USED FOR UNKNOWN INDICATION
     Dosage: DOSAGE FORM: UNSPECIFIED, 0-0-50
     Route: 065
  6. NOVORAPID INSULIN [Concomitant]
     Indication: PRODUCT USED FOR UNKNOWN INDICATION
     Dosage: DOSAGE FORM: UNSPECIFIED, 6-14-15
     Route: 065
  7. ASPIRIN [Concomitant]
     Indication: PRODUCT USED FOR UNKNOWN INDICATION
     Dosage: DOSAGE FORM: UNSPECIFIED, 0-1-0
     Route: 065
  8. DELAPRIL [Concomitant]
     Indication: PRODUCT USED FOR UNKNOWN INDICATION
     Dosage: DOSAGE FORM: UNSPECIFIED, VIVACE 30/10MG (DELAPRIL / MANIDIPINE) 1 -0-0
     Route: 065
  9. LIPLAT [Concomitant]
     Indication: PRODUCT USED FOR UNKNOWN INDICATION
     Dosage: DOSAGE FORM: UNSPECIFIED, 0-0-1
     Route: 065
  10. OMEPRAZOLE [Concomitant]
     Indication: PRODUCT USED FOR UNKNOWN INDICATION
     Dosage: DOSAGE FORM: UNSPECIFIED
     Route: 065

REACTIONS (5)
  - Acute respiratory failure [Recovering/Resolving]
  - Superinfection [Recovering/Resolving]
  - Pneumonia [Recovering/Resolving]
  - Dyspnoea [Unknown]
  - Orthopnoea [Unknown]
